FAERS Safety Report 15250128 (Version 5)
Quarter: 2018Q4

REPORT INFORMATION
  Report Type: Report from Study
  Country: US (occurrence: US)
  Receive Date: 20180807
  Receipt Date: 20181029
  Transmission Date: 20190204
  Serious: Yes (Death, Hospitalization)
  Sender: FDA-Public Use
  Company Number: US-EXELIXIS-CABO-18015083

PATIENT
  Age: 79 Year
  Sex: Female
  Weight: 72.56 kg

DRUGS (1)
  1. CABOMETYX [Suspect]
     Active Substance: CABOZANTINIB S-MALATE
     Indication: LUNG NEOPLASM MALIGNANT
     Dosage: 60 MG, QD (AM WITHOUT FOOD)
     Route: 048
     Dates: start: 20180711

REACTIONS (9)
  - Intestinal obstruction [Recovered/Resolved]
  - Metastases to central nervous system [Not Recovered/Not Resolved]
  - Liver function test increased [Unknown]
  - Blood sodium decreased [Not Recovered/Not Resolved]
  - Urinary tract infection [Unknown]
  - Off label use [Unknown]
  - Gallbladder disorder [Fatal]
  - Dysphagia [Not Recovered/Not Resolved]
  - Pulmonary embolism [Unknown]

NARRATIVE: CASE EVENT DATE: 201807
